FAERS Safety Report 7209370-2 (Version None)
Quarter: 2011Q1

REPORT INFORMATION
  Report Type: 
  Country: None (occurrence: None)
  Receive Date: 20110104
  Receipt Date: 20110103
  Transmission Date: 20110831
  Serious: Yes (Hospitalization, Other)
  Sender: FDA-Public Use
  Company Number: CZ-AMGEN-CZESP2010004179

PATIENT

DRUGS (3)
  1. NPLATE [Suspect]
     Indication: EVANS SYNDROME
  2. PREDNISONE [Concomitant]
     Dosage: UNK
     Dates: start: 20101001
  3. NPLATE [Suspect]
     Indication: THROMBOCYTOPENIA
     Dosage: 4 A?G/KG, UNK
     Dates: start: 20100831, end: 20101007

REACTIONS (3)
  - EMBOLISM ARTERIAL [None]
  - ARTERIAL HAEMORRHAGE [None]
  - HAEMATOMA [None]
